FAERS Safety Report 11256974 (Version 1)
Quarter: 2015Q3

REPORT INFORMATION
  Report Type: Spontaneous
  Country: US (occurrence: US)
  Receive Date: 20150709
  Receipt Date: 20150709
  Transmission Date: 20151125
  Serious: No
  Sender: FDA-Public Use
  Company Number: US-PURDUE-USA-2015-0124495

PATIENT
  Age: 57 Year
  Sex: Female

DRUGS (3)
  1. BUTRANS [Suspect]
     Active Substance: BUPRENORPHINE
     Indication: PAIN
     Dosage: 20 MCG/HR, WEEKLY
     Route: 062
     Dates: start: 201506
  2. BUTRANS [Suspect]
     Active Substance: BUPRENORPHINE
     Dosage: 20 MCG/HR, WEEKLY
     Route: 062
     Dates: start: 201408, end: 201505
  3. BUTRANS [Suspect]
     Active Substance: BUPRENORPHINE
     Dosage: 20 MCG/HR, WEEKLY
     Route: 062
     Dates: start: 201505, end: 201506

REACTIONS (6)
  - Application site pruritus [Unknown]
  - Application site swelling [Unknown]
  - Application site bruise [Unknown]
  - Application site haemorrhage [Unknown]
  - Unevaluable event [Unknown]
  - Application site pain [Unknown]

NARRATIVE: CASE EVENT DATE: 201411
